FAERS Safety Report 11056199 (Version 1)
Quarter: 2015Q2

REPORT INFORMATION
  Report Type: Spontaneous
  Country: DE (occurrence: DE)
  Receive Date: 20150422
  Receipt Date: 20150422
  Transmission Date: 20150821
  Serious: Yes (Death)
  Sender: FDA-Public Use
  Company Number: DE-TEVA-556022GER

PATIENT
  Age: 27 Year
  Sex: Male

DRUGS (4)
  1. HYDROXYZINE [Suspect]
     Active Substance: HYDROXYZINE\HYDROXYZINE HYDROCHLORIDE
     Route: 050
  2. LEVAMISOLE [Suspect]
     Active Substance: LEVAMISOLE
     Route: 050
  3. DILTIAZEM [Suspect]
     Active Substance: DILTIAZEM
     Route: 050
  4. CAFFEINE. [Concomitant]
     Active Substance: CAFFEINE
     Route: 065

REACTIONS (4)
  - Vomiting [Fatal]
  - Hearing impaired [Fatal]
  - Delirium [Fatal]
  - Muscle spasms [Fatal]
